FAERS Safety Report 24665146 (Version 2)
Quarter: 2024Q4

REPORT INFORMATION
  Report Type: Spontaneous
  Country: IR (occurrence: IR)
  Receive Date: 20241126
  Receipt Date: 20241202
  Transmission Date: 20250114
  Serious: Yes (Other)
  Sender: ROCHE
  Company Number: IR-BoehringerIngelheim-2024-BI-063881

PATIENT
  Age: 37 Year
  Sex: Male
  Weight: 115 kg

DRUGS (1)
  1. METALYSE [Suspect]
     Active Substance: TENECTEPLASE
     Indication: Thrombolysis
     Dosage: 50 MG- 10 CC
     Route: 051
     Dates: start: 20241105, end: 20241105

REACTIONS (3)
  - Drug ineffective [Unknown]
  - No adverse event [Unknown]
  - Product quality issue [Unknown]
